FAERS Safety Report 9253341 (Version 2)
Quarter: 2013Q2

REPORT INFORMATION
  Report Type: Spontaneous
  Country: FR (occurrence: FR)
  Receive Date: 20130424
  Receipt Date: 20130604
  Transmission Date: 20140414
  Serious: Yes (Hospitalization)
  Sender: FDA-Public Use
  Company Number: FR-ROCHE-1217823

PATIENT
  Age: 84 Year
  Sex: Female

DRUGS (8)
  1. LUCENTIS [Suspect]
     Indication: AGE-RELATED MACULAR DEGENERATION
     Route: 050
     Dates: start: 20120224
  2. LUCENTIS [Suspect]
     Route: 050
     Dates: start: 201208, end: 201208
  3. LUCENTIS [Suspect]
     Route: 050
     Dates: start: 201302
  4. LUCENTIS [Suspect]
     Route: 050
     Dates: start: 20130326, end: 20130326
  5. KENZEN [Concomitant]
     Route: 065
  6. GLIBENCLAMIDE [Concomitant]
     Route: 065
  7. STAGID [Concomitant]
  8. KARDEGIC [Concomitant]

REACTIONS (1)
  - Bradycardia [Recovered/Resolved]
